FAERS Safety Report 9671329 (Version 3)
Quarter: 2013Q4

REPORT INFORMATION
  Report Type: Spontaneous
  Country: US (occurrence: US)
  Receive Date: 20131106
  Receipt Date: 20131217
  Transmission Date: 20140711
  Serious: Yes (Other)
  Sender: FDA-Public Use
  Company Number: US-TEVA-442677USA

PATIENT
  Age: 39 Year
  Sex: Female
  Weight: 108.51 kg

DRUGS (2)
  1. PARAGARD 380A [Suspect]
     Indication: CONTRACEPTION
     Route: 015
     Dates: start: 20130627
  2. ARMOUR THYROID [Concomitant]
     Indication: HYPOTHYROIDISM

REACTIONS (3)
  - Device dislocation [Not Recovered/Not Resolved]
  - Device expulsion [Not Recovered/Not Resolved]
  - Complication of device insertion [Unknown]
